FAERS Safety Report 4752197-1 (Version None)
Quarter: 2005Q3

REPORT INFORMATION
  Report Type: 
  Country: None (occurrence: None)
  Receive Date: 20050825
  Receipt Date: 20050816
  Transmission Date: 20060218
  Serious: Yes (Death)
  Sender: FDA-Public Use
  Company Number: 200516271US

PATIENT
  Sex: Female

DRUGS (7)
  1. TAXOTERE [Suspect]
     Indication: BREAST CANCER METASTATIC
     Dosage: DOSE: UNKNOWN
     Dates: start: 20041119, end: 20050101
  2. XANAX [Concomitant]
     Dosage: DOSE: UNKNOWN
  3. FOSAMAX [Concomitant]
     Dosage: DOSE: UNKNOWN
  4. NEUPOGEN [Concomitant]
     Dosage: DOSE: UNKNOWN
  5. PRILOSEC [Concomitant]
     Dosage: DOSE: UNKNOWN
  6. VITAMINS NOS [Concomitant]
     Dosage: DOSE: UNKNOWN
  7. XELODA [Concomitant]
     Indication: BREAST CANCER METASTATIC
     Dosage: DOSE: UNK
     Dates: start: 20040101

REACTIONS (6)
  - BONE MARROW DEPRESSION [None]
  - CHILLS [None]
  - MYELOID LEUKAEMIA [None]
  - NEUTROPHIL COUNT DECREASED [None]
  - PLATELET COUNT DECREASED [None]
  - PYREXIA [None]
